FAERS Safety Report 17346856 (Version 1)
Quarter: 2020Q1

REPORT INFORMATION
  Report Type: Spontaneous
  Country: PL (occurrence: PL)
  Receive Date: 20200129
  Receipt Date: 20200129
  Transmission Date: 20200409
  Serious: No
  Sender: FDA-Public Use
  Company Number: PL-EXELIXIS-CABO-19021924

PATIENT
  Age: 65 Year
  Sex: Male

DRUGS (2)
  1. CABOMETYX [Suspect]
     Active Substance: CABOZANTINIB S-MALATE
     Indication: RENAL CANCER METASTATIC
     Dosage: UNK
  2. CABOMETYX [Suspect]
     Active Substance: CABOZANTINIB S-MALATE
     Dosage: UNK (REDUCED DOSE)

REACTIONS (4)
  - Blood creatinine increased [Not Recovered/Not Resolved]
  - Blood thyroid stimulating hormone increased [Unknown]
  - Glomerular filtration rate decreased [Not Recovered/Not Resolved]
  - Albuminuria [Recovered/Resolved]
